FAERS Safety Report 16146622 (Version 2)
Quarter: 2019Q2

REPORT INFORMATION
  Report Type: Spontaneous
  Country: FR (occurrence: FR)
  Receive Date: 20190402
  Receipt Date: 20190404
  Transmission Date: 20190711
  Serious: No
  Sender: FDA-Public Use
  Company Number: FR-ELI_LILLY_AND_COMPANY-FR201903015302

PATIENT
  Age: 26 Year
  Sex: Male

DRUGS (1)
  1. TALTZ [Suspect]
     Active Substance: IXEKIZUMAB
     Indication: PSORIASIS
     Dosage: UNK UNK, UNKNOWN
     Route: 065

REACTIONS (5)
  - Oropharyngeal pain [Unknown]
  - Otitis externa [Unknown]
  - Arthralgia [Unknown]
  - Ear pain [Unknown]
  - Inflammation [Unknown]
